FAERS Safety Report 8434223-1 (Version None)
Quarter: 2012Q2

REPORT INFORMATION
  Report Type: 
  Country: None (occurrence: None)
  Receive Date: 20120613
  Receipt Date: 20120611
  Transmission Date: 20120825
  Serious: Yes (Other)
  Sender: FDA-Public Use
  Company Number: PHHY2012BR050159

PATIENT
  Age: 18 Year
  Sex: Male

DRUGS (4)
  1. WARFARIN SODIUM [Suspect]
     Indication: ANTICOAGULANT THERAPY
     Dosage: 20 MG/ DAY
  2. PHENOBARBITAL TAB [Concomitant]
     Indication: EPILEPSY
  3. CAFFEINE CITRATE [Interacting]
  4. WARFARIN SODIUM [Interacting]
     Dosage: 7.5 MG/ DAY

REACTIONS (3)
  - INTERNATIONAL NORMALISED RATIO DECREASED [None]
  - DRUG RESISTANCE [None]
  - FOOD INTERACTION [None]
